FAERS Safety Report 13393364 (Version 1)
Quarter: 2017Q1

REPORT INFORMATION
  Report Type: Spontaneous
  Country: FR (occurrence: FR)
  Receive Date: 20170331
  Receipt Date: 20170331
  Transmission Date: 20170429
  Serious: Yes (Hospitalization)
  Sender: FDA-Public Use
  Company Number: FR-009507513-1703FRA013137

PATIENT
  Age: 62 Year
  Sex: Male

DRUGS (8)
  1. EMEND [Suspect]
     Active Substance: APREPITANT
     Indication: VOMITING
     Dosage: 1 DF, QD
     Route: 048
     Dates: start: 20170305, end: 20170306
  2. BUSULFAN. [Suspect]
     Active Substance: BUSULFAN
     Indication: BONE MARROW CONDITIONING REGIMEN
     Dosage: 227 MG, QD
     Route: 042
     Dates: start: 20170305, end: 20170306
  3. THYMOGLOBULIN [Suspect]
     Active Substance: LAPINE T-LYMPHOCYTE IMMUNE GLOBULIN
     Dosage: STRENGHT; 5MG/ML; 175 MG QD
     Route: 042
     Dates: start: 20170307, end: 20170308
  4. FLUCONAZOLE. [Suspect]
     Active Substance: FLUCONAZOLE
     Dosage: STRENGHT; 400MG/200 ML; 1 DF, QD
     Route: 042
     Dates: start: 20170304, end: 20170310
  5. IMOVANE [Suspect]
     Active Substance: ZOPICLONE
     Indication: INSOMNIA
     Dosage: 1 DF (3.75MG)
     Route: 048
     Dates: start: 20170303, end: 20170310
  6. RIVOTRIL [Suspect]
     Active Substance: CLONAZEPAM
     Dosage: 1 DF, QD
     Route: 048
     Dates: start: 20170305, end: 20170306
  7. FLUDARABINE PHOSPHATE. [Suspect]
     Active Substance: FLUDARABINE PHOSPHATE
     Indication: BONE MARROW CONDITIONING REGIMEN
     Dosage: 55.5 MG BID
     Route: 042
     Dates: start: 20170304, end: 20170308
  8. CORTANCYL [Suspect]
     Active Substance: PREDNISONE
     Dosage: 70 MG, QD
     Route: 048
     Dates: start: 20170307, end: 20170308

REACTIONS (3)
  - Hyperbilirubinaemia [Recovering/Resolving]
  - Hepatic failure [Recovering/Resolving]
  - Hepatocellular injury [Recovering/Resolving]

NARRATIVE: CASE EVENT DATE: 20170308
